FAERS Safety Report 16207852 (Version 3)
Quarter: 2020Q1

REPORT INFORMATION
  Report Type: Spontaneous
  Country: JP (occurrence: JP)
  Receive Date: 20190417
  Receipt Date: 20200127
  Transmission Date: 20200409
  Serious: Yes (Hospitalization, Other)
  Sender: FDA-Public Use
  Company Number: JP-009507513-1707JPN001587J

PATIENT
  Age: 69 Year
  Sex: Male
  Weight: 67 kg

DRUGS (10)
  1. OXINORM [Concomitant]
     Indication: CANCER PAIN
     Dosage: 5 MILLIGRAM, PRN
     Dates: start: 20170522, end: 20170803
  2. RANMARK [Concomitant]
     Active Substance: DENOSUMAB
     Indication: METASTASES TO BONE
     Dosage: 120 MILLIGRAM
     Route: 058
     Dates: start: 20170606
  3. LANSOPRAZOLE. [Concomitant]
     Active Substance: LANSOPRAZOLE
     Indication: PROPHYLAXIS
     Dosage: 30 MILLIGRAM, QD
     Route: 048
     Dates: start: 20170526
  4. DENOTAS [Concomitant]
     Active Substance: CALCIUM CARBONATE\CHOLECALCIFEROL\MAGNESIUM CARBONATE
     Indication: METASTASES TO BONE
     Dosage: 2 DOSAGE FORM, QD
     Route: 048
     Dates: start: 20170608
  5. KEYTRUDA [Suspect]
     Active Substance: PEMBROLIZUMAB
     Dosage: 200 MILLIGRAM, Q3W
     Route: 041
     Dates: end: 20180928
  6. CELECOX [Concomitant]
     Active Substance: CELECOXIB
     Indication: CANCER PAIN
     Dosage: 100 MILLIGRAM, BID
     Route: 048
     Dates: start: 20170526, end: 20170718
  7. OXYCONTIN [Concomitant]
     Active Substance: OXYCODONE HYDROCHLORIDE
     Indication: CANCER PAIN
     Dosage: 10 MILLIGRAM, BID
     Dates: start: 20170522, end: 20190222
  8. NOVAMIN [Concomitant]
     Indication: NAUSEA
     Dosage: 5 MILLIGRAM, TID
     Route: 048
     Dates: start: 20170522, end: 20170607
  9. KEYTRUDA [Suspect]
     Active Substance: PEMBROLIZUMAB
     Indication: NON-SMALL CELL LUNG CANCER
     Dosage: 200 MILLIGRAM, Q3W
     Route: 041
     Dates: start: 20170627, end: 20170627
  10. AMITIZA [Concomitant]
     Active Substance: LUBIPROSTONE
     Indication: CONSTIPATION
     Dosage: 24 MICROGRAM, BID
     Dates: start: 20170526, end: 20170727

REACTIONS (6)
  - Erythema multiforme [Recovered/Resolved]
  - Diabetes mellitus [Unknown]
  - Pigmentation disorder [Unknown]
  - Pyrexia [Recovered/Resolved]
  - Myocardial infarction [Recovering/Resolving]
  - Interstitial lung disease [Recovered/Resolved]

NARRATIVE: CASE EVENT DATE: 20170627
